FAERS Safety Report 21211034 (Version 1)
Quarter: 2022Q3

REPORT INFORMATION
  Report Type: Spontaneous
  Country: US (occurrence: US)
  Receive Date: 20220815
  Receipt Date: 20220815
  Transmission Date: 20221026
  Serious: Yes (Hospitalization)
  Sender: FDA-Public Use
  Company Number: US-La Jolla Pharmaceutical-2022TP000006

PATIENT
  Sex: Male

DRUGS (2)
  1. XERAVA [Suspect]
     Active Substance: ERAVACYCLINE DIHYDROCHLORIDE
     Indication: Product used for unknown indication
     Route: 042
  2. HEPARIN [Concomitant]
     Active Substance: HEPARIN SODIUM
     Indication: Product used for unknown indication

REACTIONS (5)
  - Urinary tract infection [Unknown]
  - Memory impairment [Unknown]
  - Disorientation [Unknown]
  - Drug interaction [Unknown]
  - Contraindicated product administered [Unknown]
